FAERS Safety Report 8919492 (Version 3)
Quarter: 2013Q1

REPORT INFORMATION
  Report Type: Spontaneous
  Country: US (occurrence: US)
  Receive Date: 20121121
  Receipt Date: 20130116
  Transmission Date: 20140127
  Serious: Yes (Other)
  Sender: FDA-Public Use
  Company Number: US-PFIZER INC-2012288473

PATIENT
  Sex: Male

DRUGS (3)
  1. LYRICA [Suspect]
     Indication: SPINAL MUSCULAR ATROPHY
     Dosage: UNK
  2. LYRICA [Suspect]
     Indication: SPINAL CORD DISORDER
     Dosage: 300MG BID IN AM AND HS
     Dates: start: 2010
  3. LYRICA [Suspect]
     Dosage: UNK

REACTIONS (11)
  - Speech disorder [Unknown]
  - Memory impairment [Unknown]
  - Off label use [Unknown]
  - Drug ineffective for unapproved indication [Unknown]
  - Pain [Unknown]
  - Fatigue [Unknown]
  - Irritability [Unknown]
  - Weight increased [Unknown]
  - Euphoric mood [Unknown]
  - Somnolence [Unknown]
  - Disturbance in attention [Unknown]
